FAERS Safety Report 16542297 (Version 1)
Quarter: 2019Q3

REPORT INFORMATION
  Report Type: Spontaneous
  Country: CN (occurrence: CN)
  Receive Date: 20190708
  Receipt Date: 20190708
  Transmission Date: 20191004
  Serious: Yes (Other)
  Sender: FDA-Public Use
  Company Number: PHHY2019CN155840

PATIENT
  Age: 56 Year
  Sex: Male

DRUGS (1)
  1. PAZOPANIB [Suspect]
     Active Substance: PAZOPANIB
     Indication: RENAL CANCER
     Dosage: UNK
     Route: 048
     Dates: start: 20190228

REACTIONS (13)
  - Ageusia [Unknown]
  - Liver function test abnormal [Recovering/Resolving]
  - Hunger [Unknown]
  - Retching [Unknown]
  - Pain in extremity [Unknown]
  - Protein urine present [Unknown]
  - Back pain [Unknown]
  - Renal impairment [Unknown]
  - Haematochezia [Unknown]
  - Body fat disorder [Unknown]
  - Constipation [Unknown]
  - Feeding disorder [Unknown]
  - Diarrhoea [Unknown]

NARRATIVE: CASE EVENT DATE: 2019
